FAERS Safety Report 4542222-5 (Version None)
Quarter: 2004Q4

REPORT INFORMATION
  Report Type: 
  Country: None (occurrence: None)
  Receive Date: 20041230
  Receipt Date: 20041221
  Transmission Date: 20050328
  Serious: Yes (Life-Threatening, Hospitalization)
  Sender: FDA-Public Use
  Company Number: US-JNJFOC-20041201869

PATIENT
  Sex: Female

DRUGS (6)
  1. INFLIXIMAB [Suspect]
     Route: 042
  2. INFLIXIMAB [Suspect]
     Route: 042
  3. PLACEBO [Suspect]
     Route: 042
  4. IMMUNOSUPPRESSIVES [Concomitant]
  5. IMMUNOMODULATORS [Concomitant]
  6. CORTICOSTEROIDS [Concomitant]

REACTIONS (2)
  - COLITIS ULCERATIVE [None]
  - INFECTION [None]
